FAERS Safety Report 10966414 (Version 3)
Quarter: 2015Q3

REPORT INFORMATION
  Report Type: Spontaneous
  Country: US (occurrence: US)
  Receive Date: 20150330
  Receipt Date: 20150721
  Transmission Date: 20151125
  Serious: Yes (Other)
  Sender: FDA-Public Use
  Company Number: US-PFIZER INC-2015107257

PATIENT
  Sex: Female

DRUGS (1)
  1. LYRICA [Suspect]
     Active Substance: PREGABALIN
     Dosage: UNK

REACTIONS (8)
  - Cardiac disorder [Unknown]
  - Glaucoma [Unknown]
  - Visual impairment [Unknown]
  - Malaise [Unknown]
  - Loss of consciousness [Unknown]
  - Nervousness [Unknown]
  - General physical condition abnormal [Unknown]
  - Pain [Unknown]
